FAERS Safety Report 9155299 (Version 5)
Quarter: 2013Q4

REPORT INFORMATION
  Report Type: Report from Study
  Country: CA (occurrence: CA)
  Receive Date: 20130311
  Receipt Date: 20131107
  Transmission Date: 20140711
  Serious: Yes (Hospitalization, Other)
  Sender: FDA-Public Use
  Company Number: CA-ROCHE-1199912

PATIENT
  Age: 64 Year
  Sex: Male
  Weight: 78 kg

DRUGS (13)
  1. ACTEMRA [Suspect]
     Indication: RHEUMATOID ARTHRITIS
     Route: 042
     Dates: start: 20110405
  2. ACTEMRA [Suspect]
     Route: 042
     Dates: start: 20110628
  3. ACTEMRA [Suspect]
     Route: 042
     Dates: start: 20110823
  4. ACTEMRA [Suspect]
     Route: 042
     Dates: start: 20130625
  5. ACTEMRA [Suspect]
     Route: 042
     Dates: start: 20131029
  6. LAMOTRIGINE [Suspect]
     Indication: PRODUCT USED FOR UNKNOWN INDICATION
     Route: 065
  7. SELENIUM [Concomitant]
  8. METHOTREXATE [Concomitant]
  9. FOLIC ACID [Concomitant]
  10. LEFLUNOMIDE [Concomitant]
  11. MELOXICAM [Concomitant]
  12. PREDNISONE [Concomitant]
  13. VITAMIN B3 [Concomitant]

REACTIONS (5)
  - Epilepsy [Unknown]
  - Suicide attempt [Unknown]
  - Overdose [Unknown]
  - Weight increased [Not Recovered/Not Resolved]
  - Weight decreased [Not Recovered/Not Resolved]
